FAERS Safety Report 6372544-7 (Version None)
Quarter: 2009Q3

REPORT INFORMATION
  Report Type: 
  Country: None (occurrence: None)
  Receive Date: 20090924
  Receipt Date: 20080925
  Transmission Date: 20100115
  Serious: Yes (Other)
  Sender: FDA-Public Use
  Company Number: US-ASTRAZENECA-2008UW20313

PATIENT
  Age: 62 Year
  Sex: Male
  Weight: 87.5 kg

DRUGS (5)
  1. SEROQUEL [Suspect]
     Indication: MENIERE'S DISEASE
     Route: 048
  2. VALIUM [Concomitant]
  3. NORVASC [Concomitant]
  4. LIPITOR [Concomitant]
  5. ATENOLOL [Concomitant]

REACTIONS (6)
  - CRYING [None]
  - INSOMNIA [None]
  - MEMORY IMPAIRMENT [None]
  - OBSESSIVE-COMPULSIVE DISORDER [None]
  - SUICIDAL IDEATION [None]
  - THINKING ABNORMAL [None]
